FAERS Safety Report 20238422 (Version 1)
Quarter: 2021Q4

REPORT INFORMATION
  Report Type: Report from Study
  Country: BR (occurrence: BR)
  Receive Date: 20211228
  Receipt Date: 20211228
  Transmission Date: 20220303
  Serious: Yes (Hospitalization, Other)
  Sender: FDA-Public Use
  Company Number: BR-JNJFOC-20211249407

PATIENT
  Sex: Male
  Weight: 92 kg

DRUGS (1)
  1. INFLIXIMAB [Suspect]
     Active Substance: INFLIXIMAB
     Indication: Ankylosing spondylitis
     Route: 042
     Dates: start: 20171010, end: 2021

REACTIONS (3)
  - Pulmonary oedema [Unknown]
  - Tuberculosis [Unknown]
  - COVID-19 [Unknown]
